FAERS Safety Report 4963174-X (Version None)
Quarter: 2006Q1

REPORT INFORMATION
  Report Type: 
  Country: None (occurrence: None)
  Receive Date: 20060331
  Receipt Date: 20060316
  Transmission Date: 20060701
  Serious: Yes (Other)
  Sender: FDA-Public Use
  Company Number: 430031N05USA

PATIENT
  Age: 40 Year
  Sex: Female
  Weight: 62.6 kg

DRUGS (7)
  1. NOVANTRONE [Suspect]
     Indication: MULTIPLE SCLEROSIS
     Dosage: 1 IN 3 MONTHS, INTRAVENOUS
     Dates: start: 20010918, end: 20031201
  2. BACLOFEN [Concomitant]
  3. BUPROPION HYDROCHLORIDE [Concomitant]
  4. TOLTERODINE TARTRATE [Concomitant]
  5. MODAFINIL [Concomitant]
  6. RALOXIFENE HCL [Concomitant]
  7. SALBUTAMOL [Concomitant]

REACTIONS (1)
  - CARDIOMYOPATHY [None]
